FAERS Safety Report 8904697 (Version 1)
Quarter: 2012Q4

REPORT INFORMATION
  Report Type: 
  Country: US (occurrence: US)
  Receive Date: 20121113
  Receipt Date: 20121113
  Transmission Date: 20130627
  Serious: No
  Sender: FDA-Public Use
  Company Number: US-GLAXOSMITHKLINE-A0971197A

PATIENT
  Age: 64 Year
  Sex: Female

DRUGS (1)
  1. COREG [Suspect]
     Route: 048
     Dates: start: 20100608

REACTIONS (1)
  - Drug dispensing error [Unknown]
